FAERS Safety Report 5923761-9 (Version None)
Quarter: 2008Q4

REPORT INFORMATION
  Report Type: 
  Country: None (occurrence: None)
  Receive Date: 20081015
  Receipt Date: 20080930
  Transmission Date: 20090506
  Serious: Yes (Hospitalization)
  Sender: FDA-Public Use
  Company Number: 230354J08GBR

PATIENT
  Age: 46 Year
  Sex: Male

DRUGS (1)
  1. REBIF [Suspect]
     Dosage: 22 MCG

REACTIONS (6)
  - ALANINE AMINOTRANSFERASE INCREASED [None]
  - ALCOHOL USE [None]
  - BLOOD SODIUM DECREASED [None]
  - EPILEPSY [None]
  - LOSS OF CONSCIOUSNESS [None]
  - SYNCOPE [None]
